FAERS Safety Report 13659906 (Version 2)
Quarter: 2017Q3

REPORT INFORMATION
  Report Type: Spontaneous
  Country: US (occurrence: US)
  Receive Date: 20170616
  Receipt Date: 20170731
  Transmission Date: 20171127
  Serious: Yes (Other)
  Sender: FDA-Public Use
  Company Number: US-ENDO PHARMACEUTICALS INC-2017-003384

PATIENT
  Sex: Male

DRUGS (1)
  1. XIAFLEX [Suspect]
     Active Substance: COLLAGENASE CLOSTRIDIUM HISTOLYTICUM
     Indication: DUPUYTREN^S CONTRACTURE
     Dosage: 0.58 MG, INJECTED INTO THE MCP JOINT OF THE FOURTH FINGER AND OF THE FIFTH FINGER OF SAME HAND
     Route: 026
     Dates: start: 201706, end: 201706

REACTIONS (3)
  - Skin exfoliation [Unknown]
  - Peripheral ischaemia [Unknown]
  - Blister [Unknown]

NARRATIVE: CASE EVENT DATE: 2017
